FAERS Safety Report 20198080 (Version 1)
Quarter: 2021Q4

REPORT INFORMATION
  Report Type: Spontaneous
  Country: US (occurrence: US)
  Receive Date: 20211217
  Receipt Date: 20211217
  Transmission Date: 20220303
  Serious: No
  Sender: FDA-Public Use
  Company Number: US-ALLERGAN-2129728US

PATIENT
  Sex: Female

DRUGS (4)
  1. PREDNISOLONE ACETATE [Suspect]
     Active Substance: PREDNISOLONE ACETATE
     Indication: Eye inflammation
     Dosage: 2 GTT, QD
     Route: 047
     Dates: start: 20210821
  2. PREDNISOLONE ACETATE [Suspect]
     Active Substance: PREDNISOLONE ACETATE
     Indication: Cataract operation
     Dosage: 2 GTT, BID
     Route: 047
     Dates: start: 20210820, end: 20210820
  3. PREDNISOLONE ACETATE [Suspect]
     Active Substance: PREDNISOLONE ACETATE
     Dosage: 2 GTT, TID
     Route: 047
     Dates: start: 20210814, end: 20210820
  4. PREDNISOLONE ACETATE [Suspect]
     Active Substance: PREDNISOLONE ACETATE
     Dosage: 2 GTT, TID
     Route: 047
     Dates: start: 20210622

REACTIONS (10)
  - Abnormal sensation in eye [Unknown]
  - Emotional disorder [Unknown]
  - Dry eye [Not Recovered/Not Resolved]
  - Condition aggravated [Recovering/Resolving]
  - Ocular hyperaemia [Unknown]
  - Eye pruritus [Recovering/Resolving]
  - Vision blurred [Recovered/Resolved]
  - Eye irritation [Recovering/Resolving]
  - Eye inflammation [Recovering/Resolving]
  - Product quality issue [Unknown]

NARRATIVE: CASE EVENT DATE: 20210813
